FAERS Safety Report 6442529-0 (Version None)
Quarter: 2009Q4

REPORT INFORMATION
  Report Type: 
  Country: None (occurrence: None)
  Receive Date: 20091117
  Receipt Date: 20091109
  Transmission Date: 20100525
  Serious: Yes (Disabling, Other)
  Sender: FDA-Public Use
  Company Number: DE-ALLERGAN-0915793US

PATIENT
  Age: 74 Year
  Sex: Female
  Weight: 85 kg

DRUGS (4)
  1. TROSPIUM CHLORIDE [Suspect]
     Indication: URGE INCONTINENCE
     Dosage: 15 MG, BID
     Route: 048
     Dates: start: 20091013, end: 20091102
  2. LEVOTHYROXINE SODIUM [Concomitant]
  3. NOCTAMID [Concomitant]
  4. ASPIRIN TAB [Concomitant]

REACTIONS (3)
  - DRUG INEFFECTIVE [None]
  - MUSCULAR WEAKNESS [None]
  - VISION BLURRED [None]
